FAERS Safety Report 15658081 (Version 6)
Quarter: 2020Q1

REPORT INFORMATION
  Report Type: Spontaneous
  Country: DE (occurrence: DE)
  Receive Date: 20181126
  Receipt Date: 20200326
  Transmission Date: 20200409
  Serious: Yes (Hospitalization, Other)
  Sender: FDA-Public Use
  Company Number: PHHY2018DE003177

PATIENT
  Age: 77 Year
  Sex: Male

DRUGS (7)
  1. VOTRIENT [Suspect]
     Active Substance: PAZOPANIB HYDROCHLORIDE
     Dosage: 600 MG, QD (200 MG-0-600 MG)
     Route: 065
  2. VOTRIENT [Suspect]
     Active Substance: PAZOPANIB HYDROCHLORIDE
     Dosage: 400 MG AND 600 MG ALTERNATING EVERY DAY
     Route: 065
     Dates: start: 2019, end: 201906
  3. SIMVASTATIN. [Concomitant]
     Active Substance: SIMVASTATIN
     Indication: PRODUCT USED FOR UNKNOWN INDICATION
     Dosage: UNK
     Route: 065
  4. VOTRIENT [Suspect]
     Active Substance: PAZOPANIB HYDROCHLORIDE
     Dosage: 400 MG, QD (0-0-400 MG)
     Route: 065
  5. VOTRIENT [Suspect]
     Active Substance: PAZOPANIB HYDROCHLORIDE
     Dosage: 400 MG, QD
     Route: 065
     Dates: start: 20190613
  6. VOTRIENT [Suspect]
     Active Substance: PAZOPANIB HYDROCHLORIDE
     Dosage: 200 MG, BIW
     Route: 065
  7. VOTRIENT [Suspect]
     Active Substance: PAZOPANIB HYDROCHLORIDE
     Indication: METASTATIC RENAL CELL CARCINOMA
     Dosage: 800 MG, QD
     Route: 065

REACTIONS (28)
  - Feeling cold [Unknown]
  - Glossitis [Unknown]
  - Skin haemorrhage [Unknown]
  - Cough [Recovered/Resolved]
  - Blood bilirubin increased [Unknown]
  - Asthenia [Unknown]
  - Stomatitis [Unknown]
  - Blood test abnormal [Unknown]
  - Myocardial infarction [Unknown]
  - Tendon rupture [Unknown]
  - Fatigue [Unknown]
  - Arteriosclerosis coronary artery [Unknown]
  - Blister [Unknown]
  - Sensitive skin [Unknown]
  - Skin laceration [Unknown]
  - Nasopharyngitis [Not Recovered/Not Resolved]
  - Pain [Unknown]
  - Haemorrhage [Unknown]
  - Pain in extremity [Unknown]
  - Limb discomfort [Unknown]
  - Limb injury [Unknown]
  - Gastrointestinal disorder [Unknown]
  - Pruritus [Unknown]
  - Pneumonia [Unknown]
  - Burning sensation [Unknown]
  - Skin atrophy [Unknown]
  - Movement disorder [Unknown]
  - Rhinorrhoea [Unknown]

NARRATIVE: CASE EVENT DATE: 2019
